FAERS Safety Report 10958422 (Version 1)
Quarter: 2015Q1

REPORT INFORMATION
  Report Type: Report from Study
  Country: US (occurrence: US)
  Receive Date: 20150326
  Receipt Date: 20150326
  Transmission Date: 20150721
  Serious: Yes (Hospitalization, Other)
  Sender: FDA-Public Use
  Company Number: US-GILEAD-2015-0142730

PATIENT
  Age: 61 Year
  Sex: Female

DRUGS (12)
  1. COUMADIN [Concomitant]
     Active Substance: WARFARIN SODIUM
  2. OMEPRAZOLE. [Concomitant]
     Active Substance: OMEPRAZOLE
  3. AMLODIPINE [Concomitant]
     Active Substance: AMLODIPINE BESYLATE
  4. SYMBICORT [Concomitant]
     Active Substance: BUDESONIDE\FORMOTEROL FUMARATE DIHYDRATE
  5. MIRALAX [Concomitant]
     Active Substance: POLYETHYLENE GLYCOL 3350
  6. PULMICORT TURBUHALER [Concomitant]
     Active Substance: BUDESONIDE
  7. DIOVAN HCT [Concomitant]
     Active Substance: HYDROCHLOROTHIAZIDE\VALSARTAN
  8. TORSEMIDE. [Concomitant]
     Active Substance: TORSEMIDE
  9. SILDENAFIL. [Concomitant]
     Active Substance: SILDENAFIL
  10. POTASSIUM [Concomitant]
     Active Substance: POTASSIUM
  11. MELOXICAM. [Concomitant]
     Active Substance: MELOXICAM
  12. AMBRISENTAN [Suspect]
     Active Substance: AMBRISENTAN
     Indication: PULMONARY ARTERIAL HYPERTENSION
     Dosage: 5 MG, QD
     Route: 065
     Dates: start: 20140912

REACTIONS (2)
  - Dyspnoea [Recovering/Resolving]
  - Respiratory tract infection [Recovering/Resolving]
